FAERS Safety Report 8500139-5 (Version None)
Quarter: 2012Q3

REPORT INFORMATION
  Report Type: 
  Country: None (occurrence: None)
  Receive Date: 20120710
  Receipt Date: 20120706
  Transmission Date: 20120928
  Serious: Yes (Other)
  Sender: FDA-Public Use
  Company Number: US-PFIZER INC-2010US-36173

PATIENT
  Sex: Male
  Weight: 111 kg

DRUGS (5)
  1. CALAN [Suspect]
     Indication: HYPERTENSION
     Dosage: 180 MG, 1X/DAY
     Route: 065
  2. ALBUTEROL [Concomitant]
     Indication: ASTHMA
     Dosage: UNK
  3. LISINOPRIL [Concomitant]
     Dosage: 10 MG, UNK
  4. METFORMIN [Concomitant]
     Dosage: UNK
  5. PREVACID [Concomitant]
     Dosage: UNK
     Route: 065

REACTIONS (1)
  - ARTHROPATHY [None]
